FAERS Safety Report 18590147 (Version 1)
Quarter: 2020Q4

REPORT INFORMATION
  Report Type: Spontaneous
  Country: US (occurrence: US)
  Receive Date: 20201207
  Receipt Date: 20201207
  Transmission Date: 20210114
  Serious: No
  Sender: FDA-Public Use
  Company Number: None

PATIENT
  Age: 71 Year
  Sex: Female

DRUGS (2)
  1. JAKAFI [Suspect]
     Active Substance: RUXOLITINIB
     Indication: HEREDITARY DISORDER
     Dosage: ?          QUANTITY:1 TABLET;?
     Route: 048
     Dates: start: 202009
  2. JAKAFI [Suspect]
     Active Substance: RUXOLITINIB
     Indication: MYELOPROLIFERATIVE NEOPLASM
     Dosage: ?          QUANTITY:1 TABLET;?
     Route: 048
     Dates: start: 202009

REACTIONS (1)
  - Tinnitus [None]

NARRATIVE: CASE EVENT DATE: 20201204
